FAERS Safety Report 26127461 (Version 1)
Quarter: 2025Q4

REPORT INFORMATION
  Report Type: Spontaneous
  Country: CN (occurrence: CN)
  Receive Date: 20251205
  Receipt Date: 20251205
  Transmission Date: 20260117
  Serious: Yes (Other)
  Sender: ELI LILLY AND COMPANY
  Company Number: CN-ELI_LILLY_AND_COMPANY-CN202511028993

PATIENT
  Age: 61 Year
  Sex: Female
  Weight: 50 kg

DRUGS (1)
  1. HUMALOG [Suspect]
     Active Substance: INSULIN LISPRO
     Indication: Diabetes mellitus
     Dosage: 24 INTERNATIONAL UNIT, DAILY
     Route: 058
     Dates: start: 20250912

REACTIONS (2)
  - Agitation [Recovering/Resolving]
  - Hypoglycaemia [Recovering/Resolving]

NARRATIVE: CASE EVENT DATE: 20250912
